FAERS Safety Report 26204544 (Version 2)
Quarter: 2025Q4

REPORT INFORMATION
  Report Type: Spontaneous
  Country: US (occurrence: US)
  Receive Date: 20251227
  Receipt Date: 20251227
  Transmission Date: 20260118
  Serious: Yes (Hospitalization)
  Sender: ASTELLAS
  Company Number: US-ASTELLAS-2025-AER-069911

PATIENT
  Sex: Female

DRUGS (2)
  1. VYLOY [Suspect]
     Active Substance: ZOLBETUXIMAB-CLZB
     Indication: Product used for unknown indication
     Dosage: 2ND STEP UP TITRATION OF 80ML/HOUR WHEN INFUSION HAD TO BE PAUSED, RESUMED 45 MINUTES LATER UNTIL CO
     Route: 065
     Dates: start: 20251212
  2. FLUOROURACIL\LEUCOVORIN CALCIUM\OXALIPLATIN [Suspect]
     Active Substance: FLUOROURACIL\LEUCOVORIN CALCIUM\OXALIPLATIN
     Indication: Product used for unknown indication
     Route: 065
     Dates: start: 20251212

REACTIONS (5)
  - Abdominal pain [Unknown]
  - Dizziness [Unknown]
  - Chest pain [Unknown]
  - Vomiting projectile [Unknown]
  - Nausea [Unknown]

NARRATIVE: CASE EVENT DATE: 20251212
